FAERS Safety Report 5632879-X (Version None)
Quarter: 2008Q1

REPORT INFORMATION
  Report Type: 
  Country: None (occurrence: None)
  Receive Date: 20080221
  Receipt Date: 20080219
  Transmission Date: 20080703
  Serious: Yes (Hospitalization)
  Sender: FDA-Public Use
  Company Number: PE-BRISTOL-MYERS SQUIBB COMPANY-14081566

PATIENT
  Age: 29 Year
  Sex: Male

DRUGS (1)
  1. STAVUDINE [Suspect]
     Indication: HIV INFECTION

REACTIONS (2)
  - DYSLIPIDAEMIA [None]
  - XANTHOMA [None]
